FAERS Safety Report 7703212-4 (Version None)
Quarter: 2011Q3

REPORT INFORMATION
  Report Type: 
  Country: None (occurrence: None)
  Receive Date: 20110823
  Receipt Date: 20110812
  Transmission Date: 20111222
  Serious: Yes (Hospitalization)
  Sender: FDA-Public Use
  Company Number: CH-JNJFOC-20110806986

PATIENT
  Age: 21 Year
  Sex: Male

DRUGS (4)
  1. REMICADE [Suspect]
     Route: 042
     Dates: start: 20080901, end: 20080101
  2. AZATHIOPRINE [Suspect]
     Indication: CROHN'S DISEASE
     Dates: start: 20080901, end: 20080101
  3. REMICADE [Suspect]
     Indication: CROHN'S DISEASE
     Dosage: RE-INITIATED
     Route: 042
     Dates: start: 20090801, end: 20110301
  4. METHOTREXATE [Suspect]
     Indication: CROHN'S DISEASE
     Dates: start: 20080901, end: 20081201

REACTIONS (4)
  - PANCREATITIS [None]
  - HENOCH-SCHONLEIN PURPURA [None]
  - PSORIASIS [None]
  - VITILIGO [None]
